FAERS Safety Report 11539643 (Version 1)
Quarter: 2015Q3

REPORT INFORMATION
  Report Type: Spontaneous
  Country: US (occurrence: None)
  Receive Date: 20150922
  Receipt Date: 20150922
  Transmission Date: 20151125
  Serious: No
  Sender: FDA-Public Use
  Company Number: None

PATIENT
  Age: 46 Year
  Sex: Female

DRUGS (1)
  1. HUMIRA [Suspect]
     Active Substance: ADALIMUMAB
     Dosage: DOSE FORM: INJECTABLE  FREQUENCY: 160MG (4 PENS) ON DAY 1, 80MG (2 PE
     Route: 058
     Dates: start: 20150911

REACTIONS (2)
  - Middle insomnia [None]
  - Pollakiuria [None]

NARRATIVE: CASE EVENT DATE: 20150915
